FAERS Safety Report 5990293-1 (Version None)
Quarter: 2008Q4

REPORT INFORMATION
  Report Type: 
  Country: None (occurrence: None)
  Receive Date: 20081211
  Receipt Date: 20080417
  Transmission Date: 20090506
  Serious: No
  Sender: FDA-Public Use
  Company Number: US-AMGEN-KDL275266

PATIENT
  Sex: Female

DRUGS (4)
  1. ENBREL [Suspect]
     Indication: RHEUMATOID ARTHRITIS
     Route: 058
     Dates: start: 20080327
  2. SULFASALAZINE [Concomitant]
  3. ARAVA [Concomitant]
  4. PLAQUENIL [Concomitant]
     Route: 048

REACTIONS (1)
  - INJECTION SITE MASS [None]
